FAERS Safety Report 6159639-8 (Version None)
Quarter: 2009Q2

REPORT INFORMATION
  Report Type: 
  Country: None (occurrence: None)
  Receive Date: 20090420
  Receipt Date: 20090415
  Transmission Date: 20091009
  Serious: Yes (Hospitalization, Other)
  Sender: FDA-Public Use
  Company Number: US-BAYER-200841777NA

PATIENT
  Sex: Female

DRUGS (1)
  1. MIRENA [Suspect]
     Indication: CONTRACEPTION
     Dosage: 20 MCG/DAY CONTINUOUS
     Route: 015
     Dates: start: 20050801

REACTIONS (6)
  - ABDOMINAL PAIN LOWER [None]
  - AMENORRHOEA [None]
  - GASTROINTESTINAL PERFORATION [None]
  - INFECTION [None]
  - LARGE INTESTINE PERFORATION [None]
  - UTERINE RUPTURE [None]
